FAERS Safety Report 25766062 (Version 1)
Quarter: 2025Q3

REPORT INFORMATION
  Report Type: Spontaneous
  Country: US (occurrence: US)
  Receive Date: 20250905
  Receipt Date: 20250905
  Transmission Date: 20251020
  Serious: No
  Sender: DOMPE FARMACEUTICI
  Company Number: US-FARMAPROD-202407-2773

PATIENT
  Age: 67 Year
  Sex: Female
  Weight: 62.6 kg

DRUGS (11)
  1. OXERVATE [Suspect]
     Active Substance: CENEGERMIN-BKBJ
     Indication: Neurotrophic keratopathy
     Route: 047
     Dates: start: 20240727
  2. OXERVATE [Suspect]
     Active Substance: CENEGERMIN-BKBJ
  3. LOSARTAN POTASSIUM [Concomitant]
     Active Substance: LOSARTAN POTASSIUM
  4. ASPIRIN [Concomitant]
     Active Substance: ASPIRIN
  5. B12 ACTIVE [Concomitant]
  6. COENZYME Q10 [Concomitant]
     Active Substance: DIETARY SUPPLEMENT\UBIDECARENONE
  7. VITAMIN D3 [Concomitant]
     Active Substance: CHOLECALCIFEROL
  8. VITAMIN A [Concomitant]
     Active Substance: VITAMIN A
  9. NITROGLYCERIN [Concomitant]
     Active Substance: NITROGLYCERIN
  10. BENADRYL [Concomitant]
     Active Substance: DIPHENHYDRAMINE HYDROCHLORIDE
  11. PAPAYA [Concomitant]
     Active Substance: PAPAYA

REACTIONS (18)
  - Periorbital pain [Unknown]
  - Ocular hyperaemia [Unknown]
  - Eye discharge [Not Recovered/Not Resolved]
  - Swollen tongue [Unknown]
  - Pyrexia [Unknown]
  - Pain [Unknown]
  - Oropharyngeal pain [Not Recovered/Not Resolved]
  - Wrong technique in product usage process [Unknown]
  - Accidental overdose [Unknown]
  - Product dose omission issue [Unknown]
  - Eye pain [Unknown]
  - Headache [Not Recovered/Not Resolved]
  - Chills [Unknown]
  - Erythema [Unknown]
  - Vision blurred [Not Recovered/Not Resolved]
  - Swelling face [Unknown]
  - Sinus disorder [Unknown]
  - Blood pressure increased [Unknown]

NARRATIVE: CASE EVENT DATE: 20240729
